FAERS Safety Report 7678737-0 (Version None)
Quarter: 2011Q3

REPORT INFORMATION
  Report Type: 
  Country: None (occurrence: None)
  Receive Date: 20110811
  Receipt Date: 20110801
  Transmission Date: 20111222
  Serious: Yes (Hospitalization)
  Sender: FDA-Public Use
  Company Number: US-CELGENEUS-163-20785-11064015

PATIENT
  Sex: Male

DRUGS (6)
  1. THALOMID [Suspect]
     Dosage: 100 MILLIGRAM
     Route: 048
     Dates: start: 20091001
  2. THALOMID [Suspect]
     Dosage: 7.1429 MILLIGRAM
     Route: 048
     Dates: start: 20110701
  3. LIPITOR [Concomitant]
     Dosage: 10 MILLIGRAM
     Route: 048
  4. THALOMID [Suspect]
     Dosage: 50 MILLIGRAM
     Route: 048
     Dates: start: 20100201
  5. THALOMID [Suspect]
     Dosage: 50 MILLIGRAM
     Route: 048
  6. NEXIUM [Concomitant]
     Dosage: 40 MILLIGRAM
     Route: 048

REACTIONS (1)
  - APPENDICITIS [None]
